FAERS Safety Report 8406551 (Version 3)
Quarter: 2014Q1

REPORT INFORMATION
  Report Type: Spontaneous
  Country: US (occurrence: US)
  Receive Date: 20120215
  Receipt Date: 20140213
  Transmission Date: 20141002
  Serious: Yes (Hospitalization, Other)
  Sender: FDA-Public Use
  Company Number: US-BAYER-2012-014318

PATIENT
  Age: 47 Year
  Sex: Female
  Weight: 61.22 kg

DRUGS (6)
  1. YAZ [Suspect]
     Dosage: UNK
     Dates: start: 200910, end: 200911
  2. VITAMIN C [Concomitant]
     Indication: GENERAL SYMPTOM
     Dosage: 500 MG, PER DAY
     Route: 048
     Dates: start: 1999, end: 2009
  3. OSCAL [Concomitant]
     Indication: HYPOVITAMINOSIS
     Dosage: 1 A DAY
     Route: 048
     Dates: start: 1999, end: 2009
  4. SYNTHROID [Concomitant]
     Indication: HYPOTHYROIDISM
     Dosage: UNK
     Route: 048
     Dates: start: 1999
  5. DILAUDID [Concomitant]
  6. ZOFRAN [Concomitant]

REACTIONS (7)
  - Gallbladder disorder [None]
  - Biliary dyskinesia [None]
  - Cholecystitis [None]
  - Anxiety [None]
  - Anhedonia [None]
  - Abdominal pain [None]
  - Pain [None]
